FAERS Safety Report 8447220-7 (Version None)
Quarter: 2012Q2

REPORT INFORMATION
  Report Type: 
  Country: None (occurrence: None)
  Receive Date: 20120619
  Receipt Date: 20120613
  Transmission Date: 20120825
  Serious: Yes (Hospitalization)
  Sender: FDA-Public Use
  Company Number: US-COVIDIEN/TYCO HEALTHCARE/MALLINCKRODT-T201201651

PATIENT
  Sex: Male
  Weight: 98.866 kg

DRUGS (5)
  1. ZOLOFT [Concomitant]
     Indication: DEPRESSION
     Dosage: 200 MG QD
     Route: 048
  2. ZOLOFT [Concomitant]
     Indication: PAIN
  3. XANAX [Concomitant]
     Indication: ANXIETY
     Dosage: 1 MG, TID
     Route: 048
  4. HYDROCODONE BITARTRATE AND ACETAMINOPHEN [Concomitant]
     Indication: PAIN
     Dosage: 1-2 TABLETS OF 10/325 MG Q 4 HOURS; 8/DAY
     Route: 048
  5. HYDROCODONE BITARTRATE + ACETAMINOPHEN [Suspect]
     Indication: BACK PAIN
     Dosage: 1-2 TABLETS Q 4 HOURS
     Route: 048
     Dates: start: 20120422, end: 20120425

REACTIONS (5)
  - CONFUSIONAL STATE [None]
  - WEIGHT INCREASED [None]
  - SWELLING [None]
  - AMNESIA [None]
  - ANAPHYLACTIC REACTION [None]
